FAERS Safety Report 8915349 (Version 1)
Quarter: 2012Q4

REPORT INFORMATION
  Report Type: 
  Country: US (occurrence: US)
  Receive Date: 20121119
  Receipt Date: 20121119
  Transmission Date: 20130627
  Serious: Yes (Hospitalization, Other)
  Sender: FDA-Public Use
  Company Number: US-PFIZER INC-2011008334

PATIENT
  Age: 57 Year
  Sex: Female
  Weight: 57.6 kg

DRUGS (6)
  1. LYRICA [Suspect]
     Indication: OSTEOARTHRITIS
     Dosage: 100 mg, 2x/day
     Route: 048
     Dates: start: 200811
  2. LYRICA [Suspect]
     Indication: NERVE PAIN
     Dosage: 150 mg, 2x/day
     Route: 048
  3. LYRICA [Suspect]
     Indication: NEUROPATHY PERIPHERAL
     Dosage: 125 mg (one capsule of 75 mg one capsule of 50 mg) two times a day
  4. LYRICA [Suspect]
     Indication: ARTHRITIS
  5. ATENOLOL [Concomitant]
     Indication: BLOOD PRESSURE HIGH
     Dosage: 50 mg, daily
  6. ATENOLOL [Concomitant]
     Indication: TACHYCARDIA

REACTIONS (7)
  - Blood sodium decreased [Unknown]
  - Convulsion [Not Recovered/Not Resolved]
  - Epilepsy [Unknown]
  - Intracranial aneurysm [Recovering/Resolving]
  - Nephrolithiasis [Recovering/Resolving]
  - Malaise [Unknown]
  - Pain [Unknown]
